FAERS Safety Report 9478285 (Version 5)
Quarter: 2014Q2

REPORT INFORMATION
  Report Type: Spontaneous
  Country: US (occurrence: US)
  Receive Date: 20130827
  Receipt Date: 20140523
  Transmission Date: 20141212
  Serious: Yes (Hospitalization, Other)
  Sender: FDA-Public Use
  Company Number: US-009507513-1308USA010814

PATIENT
  Sex: Female
  Weight: 95.24 kg

DRUGS (16)
  1. FOSAMAX [Suspect]
     Indication: OSTEOPENIA
     Dosage: 70 MG, QW
     Route: 048
     Dates: start: 200007, end: 200905
  2. FOSAMAX [Suspect]
     Indication: OSTEOPOROSIS
  3. FOSAMAX PLUS D [Suspect]
     Indication: OSTEOPENIA
     Dosage: 70 MG/2800 IU, UNK
     Route: 048
     Dates: start: 200505, end: 201112
  4. FOSAMAX PLUS D [Suspect]
     Indication: OSTEOPOROSIS
  5. LASIX (FUROSEMIDE SODIUM) [Concomitant]
     Indication: FLUID RETENTION
     Dosage: 40 MG, QD
     Route: 048
     Dates: start: 1993
  6. LOSARTAN POTASSIUM [Concomitant]
     Indication: HYPERTENSION
     Dosage: UNK
     Dates: start: 1998
  7. LISINOPRIL [Concomitant]
     Indication: HYPERTENSION
     Dosage: 20 MG, QD
     Route: 048
     Dates: start: 1998
  8. FLONASE [Concomitant]
     Indication: HYPERSENSITIVITY
     Dosage: 0.05 %, BID
     Route: 045
     Dates: start: 2000
  9. FLONASE [Concomitant]
     Indication: ASTHMA
  10. ALLEGRA [Concomitant]
     Indication: HYPERSENSITIVITY
     Dosage: 180 MG, QD
     Route: 048
     Dates: start: 2000
  11. ALLEGRA [Concomitant]
     Indication: ASTHMA
  12. SINGULAIR [Concomitant]
     Indication: HYPERSENSITIVITY
     Dosage: 10 MG, QPM
     Route: 048
     Dates: start: 2000
  13. SINGULAIR [Concomitant]
     Indication: ASTHMA
  14. ADVAIR [Concomitant]
     Indication: HYPERSENSITIVITY
     Dosage: 250/50, QD
     Route: 055
     Dates: start: 2000
  15. ADVAIR [Concomitant]
     Indication: ASTHMA
  16. HORMONES (UNSPECIFIED) [Concomitant]

REACTIONS (34)
  - Intramedullary rod insertion [Unknown]
  - Intramedullary rod insertion [Unknown]
  - Femur fracture [Recovered/Resolved]
  - Femur fracture [Recovered/Resolved]
  - Low turnover osteopathy [Unknown]
  - Weight increased [Unknown]
  - Fatigue [Unknown]
  - Visual impairment [Unknown]
  - Oropharyngeal pain [Unknown]
  - Epistaxis [Unknown]
  - Exercise tolerance decreased [Unknown]
  - Chest discomfort [Unknown]
  - Urinary incontinence [Unknown]
  - Tinnitus [Unknown]
  - Muscle spasticity [Unknown]
  - Flushing [Unknown]
  - Fibromyalgia [Unknown]
  - Mental disorder [Unknown]
  - Umbilical hernia repair [Unknown]
  - Bunion operation [Unknown]
  - Hypoaesthesia [Unknown]
  - Aortic aneurysm [Unknown]
  - Intervertebral disc degeneration [Unknown]
  - Haemorrhagic anaemia [Unknown]
  - Nasal polypectomy [Unknown]
  - Umbilical hernia [Unknown]
  - Spondylitis [Unknown]
  - Bursitis [Unknown]
  - Device failure [Unknown]
  - Alopecia [Unknown]
  - Back pain [Unknown]
  - Pain in extremity [Unknown]
  - Constipation [Unknown]
  - Gastrooesophageal reflux disease [Unknown]
